FAERS Safety Report 23162833 (Version 2)
Quarter: 2023Q4

REPORT INFORMATION
  Report Type: Report from Study
  Country: GB (occurrence: GB)
  Receive Date: 20231109
  Receipt Date: 20231121
  Transmission Date: 20240110
  Serious: Yes (Other)
  Sender: FDA-Public Use
  Company Number: GB-TAKEDA-2023TUS107204

PATIENT
  Sex: Female

DRUGS (1)
  1. VEDOLIZUMAB [Suspect]
     Active Substance: VEDOLIZUMAB
     Indication: Crohn^s disease
     Dosage: 108 MILLIGRAM, Q2WEEKS
     Route: 058

REACTIONS (5)
  - Myocardial infarction [Unknown]
  - Fall [Unknown]
  - Pathogen resistance [Unknown]
  - Urinary tract infection [Recovered/Resolved]
  - Blood potassium decreased [Unknown]
